FAERS Safety Report 16917286 (Version 8)
Quarter: 2020Q1

REPORT INFORMATION
  Report Type: Spontaneous
  Country: NL (occurrence: NL)
  Receive Date: 20191015
  Receipt Date: 20200217
  Transmission Date: 20200409
  Serious: Yes (Death, Hospitalization, Disabling, Congenital Anomaly, Other)
  Sender: FDA-Public Use
  Company Number: NL-AUROBINDO-AUR-APL-2019-066459

PATIENT
  Age: 62 Year
  Sex: Female
  Weight: 49.6 kg

DRUGS (6)
  1. DEXAMETHASON [Suspect]
     Active Substance: DEXAMETHASONE
     Indication: PLASMA CELL MYELOMA
     Dosage: 40 MILLIGRAM
     Route: 048
     Dates: start: 20190902, end: 20190913
  2. CEFUROXIME. [Concomitant]
     Active Substance: CEFUROXIME
     Indication: SEPSIS
     Dosage: UNK
     Route: 065
     Dates: start: 20190916
  3. LENALIDOMIDE [Suspect]
     Active Substance: LENALIDOMIDE
     Indication: PLASMA CELL MYELOMA
     Dosage: 25 MILLIGRAM
     Route: 048
     Dates: start: 20190902, end: 20190915
  4. VELCADE [Suspect]
     Active Substance: BORTEZOMIB
     Dosage: 1 MILLIGRAM
     Route: 058
     Dates: start: 20190912, end: 20190912
  5. SODIUM BICARBONATE. [Concomitant]
     Active Substance: SODIUM BICARBONATE
     Indication: BLOOD POTASSIUM INCREASED
     Dosage: UNK
     Route: 042
     Dates: start: 20190916
  6. VELCADE [Suspect]
     Active Substance: BORTEZOMIB
     Indication: PLASMA CELL MYELOMA
     Dosage: 2 MILLIGRAM
     Route: 058
     Dates: start: 20190902, end: 20190909

REACTIONS (7)
  - Dyspnoea [Unknown]
  - Septic shock [Fatal]
  - Diarrhoea [Fatal]
  - Hypotension [Unknown]
  - Vomiting [Unknown]
  - Renal impairment [Fatal]
  - Atrial fibrillation [Fatal]

NARRATIVE: CASE EVENT DATE: 20190913
